FAERS Safety Report 24762383 (Version 8)
Quarter: 2025Q2

REPORT INFORMATION
  Report Type: Report from Study
  Country: US (occurrence: US)
  Receive Date: 20241221
  Receipt Date: 20250604
  Transmission Date: 20250716
  Serious: Yes (Other)
  Sender: CSL BEHRING
  Company Number: US-BEH-2024187430

PATIENT
  Age: 47 Year
  Sex: Female
  Weight: 124.71 kg

DRUGS (5)
  1. BERINERT [Suspect]
     Active Substance: HUMAN C1-ESTERASE INHIBITOR
     Indication: Hereditary angioedema
     Dosage: 7000 IU/KG, BIW
     Route: 058
  2. BERINERT [Suspect]
     Active Substance: HUMAN C1-ESTERASE INHIBITOR
     Indication: Prophylaxis
     Route: 058
     Dates: start: 20241124
  3. BERINERT [Suspect]
     Active Substance: HUMAN C1-ESTERASE INHIBITOR
     Route: 058
  4. BERINERT [Suspect]
     Active Substance: HUMAN C1-ESTERASE INHIBITOR
     Indication: Hereditary angioedema
     Dosage: 7000 IU/KG, BIW
     Route: 058
  5. BERINERT [Suspect]
     Active Substance: HUMAN C1-ESTERASE INHIBITOR
     Indication: Prophylaxis

REACTIONS (16)
  - Hereditary angioedema [Recovered/Resolved]
  - Product use issue [Recovering/Resolving]
  - Hereditary angioedema [Recovering/Resolving]
  - Hereditary angioedema [Unknown]
  - Hereditary angioedema [Unknown]
  - Hereditary angioedema [Recovered/Resolved]
  - Hereditary angioedema [Recovering/Resolving]
  - Hereditary angioedema [Unknown]
  - Peripheral swelling [Recovering/Resolving]
  - Insurance issue [Recovered/Resolved]
  - Insurance issue [Unknown]
  - Urticaria [Unknown]
  - Therapy interrupted [Recovering/Resolving]
  - Urticaria [Unknown]
  - Speech disorder [Unknown]
  - Skin discolouration [Unknown]

NARRATIVE: CASE EVENT DATE: 20241130
